FAERS Safety Report 12547340 (Version 1)
Quarter: 2016Q3

REPORT INFORMATION
  Report Type: Spontaneous
  Country: FR (occurrence: FR)
  Receive Date: 20160711
  Receipt Date: 20160711
  Transmission Date: 20161109
  Serious: Yes (Other)
  Sender: FDA-Public Use
  Company Number: FR-009507513-1606FRA008946

PATIENT
  Age: 23 Year
  Sex: Female
  Weight: 70 kg

DRUGS (1)
  1. NEXPLANON [Suspect]
     Active Substance: ETONOGESTREL
     Dosage: UNK
     Route: 059
     Dates: start: 20150710, end: 20160616

REACTIONS (5)
  - Weight increased [Unknown]
  - General anaesthesia [Recovered/Resolved]
  - Migration of implanted drug [Recovered/Resolved]
  - Device deployment issue [Recovered/Resolved]
  - Complication associated with device [Recovered/Resolved]

NARRATIVE: CASE EVENT DATE: 20150710
